FAERS Safety Report 17791731 (Version 2)
Quarter: 2020Q4

REPORT INFORMATION
  Report Type: Spontaneous
  Country: CA (occurrence: CA)
  Receive Date: 20200515
  Receipt Date: 20201127
  Transmission Date: 20210113
  Serious: Yes (Hospitalization, Other)
  Sender: FDA-Public Use
  Company Number: CA-SAMSUNG BIOEPIS-SB-2020-15766

PATIENT
  Age: 52 Year
  Sex: Female

DRUGS (1)
  1. INFLIXIMAB [Suspect]
     Active Substance: INFLIXIMAB
     Indication: CROHN^S DISEASE
     Route: 042

REACTIONS (18)
  - Influenza [Unknown]
  - Therapy non-responder [Unknown]
  - Arthralgia [Unknown]
  - Dizziness [Unknown]
  - Inappropriate schedule of product administration [Unknown]
  - Incorrect dose administered [Unknown]
  - Clostridium difficile infection [Unknown]
  - Condition aggravated [Unknown]
  - Abdominal distension [Unknown]
  - Heart rate increased [Unknown]
  - Pyrexia [Unknown]
  - Intestinal obstruction [Unknown]
  - Drug level increased [Unknown]
  - Abdominal pain [Unknown]
  - Constipation [Unknown]
  - Joint swelling [Unknown]
  - Myalgia [Unknown]
  - Off label use [Unknown]
